FAERS Safety Report 10759801 (Version 2)
Quarter: 2015Q3

REPORT INFORMATION
  Report Type: Spontaneous
  Country: US (occurrence: US)
  Receive Date: 20150203
  Receipt Date: 20150819
  Transmission Date: 20151125
  Serious: No
  Sender: FDA-Public Use
  Company Number: US-GILEAD-2015-0135318

PATIENT
  Age: 59 Year
  Sex: Female

DRUGS (14)
  1. LYRICA [Concomitant]
     Active Substance: PREGABALIN
  2. LETAIRIS [Suspect]
     Active Substance: AMBRISENTAN
     Indication: COR PULMONALE CHRONIC
     Dosage: 10 MG, QD
     Route: 065
     Dates: start: 20140521
  3. ADEMPAS [Concomitant]
     Active Substance: RIOCIGUAT
  4. HYDROCODONE [Concomitant]
     Active Substance: HYDROCODONE
  5. COUMADIN [Concomitant]
     Active Substance: WARFARIN SODIUM
  6. LORATADINE. [Concomitant]
     Active Substance: LORATADINE
  7. LIPITOR [Concomitant]
     Active Substance: ATORVASTATIN CALCIUM
  8. TRICOR                             /00090101/ [Concomitant]
     Active Substance: ADENOSINE
  9. GABAPENTIN. [Concomitant]
     Active Substance: GABAPENTIN
  10. DIOVAN [Concomitant]
     Active Substance: VALSARTAN
  11. CYMBALTA [Concomitant]
     Active Substance: DULOXETINE HYDROCHLORIDE
  12. LEVOTHYROXINE. [Concomitant]
     Active Substance: LEVOTHYROXINE
  13. CYCLOBENZAPRINE [Concomitant]
     Active Substance: CYCLOBENZAPRINE
  14. RISPERDAL [Concomitant]
     Active Substance: RISPERIDONE

REACTIONS (2)
  - Nasal congestion [Unknown]
  - Tooth abscess [Unknown]
